FAERS Safety Report 7967633-7 (Version None)
Quarter: 2011Q4

REPORT INFORMATION
  Report Type: 
  Country: None (occurrence: None)
  Receive Date: 20111207
  Receipt Date: 20111201
  Transmission Date: 20120403
  Serious: No
  Sender: FDA-Public Use
  Company Number: 2011-01321

PATIENT

DRUGS (2)
  1. THYROID TAB [Concomitant]
  2. ZICAM COLD REMEDY NASAL GEL [Suspect]
     Route: 045

REACTIONS (1)
  - ANOSMIA [None]
